FAERS Safety Report 23537799 (Version 3)
Quarter: 2025Q2

REPORT INFORMATION
  Report Type: Spontaneous
  Country: US (occurrence: US)
  Receive Date: 20240219
  Receipt Date: 20250417
  Transmission Date: 20250717
  Serious: Yes (Other)
  Sender: AURINIA PHARMACEUTICALS
  Company Number: US-AURINIA PHARMACEUTICALS INC.-AUR-003966

PATIENT
  Age: 45 Year
  Sex: Female

DRUGS (7)
  1. LUPKYNIS [Suspect]
     Active Substance: VOCLOSPORIN
     Indication: Lupus nephritis
     Dosage: 15.8 MILLIGRAM, BID
     Route: 048
     Dates: start: 20221230
  2. LUPKYNIS [Suspect]
     Active Substance: VOCLOSPORIN
     Dosage: 15.8 MILLIGRAM, BID
     Route: 048
     Dates: start: 20221230
  3. LUPKYNIS [Suspect]
     Active Substance: VOCLOSPORIN
     Dosage: 15.8 MILLIGRAM, BID
     Route: 048
  4. LEUKERAN [Concomitant]
     Active Substance: CHLORAMBUCIL
     Indication: Product used for unknown indication
  5. MYFORTIC [Concomitant]
     Active Substance: MYCOPHENOLATE SODIUM
     Indication: Product used for unknown indication
  6. PLAQUENIL [Concomitant]
     Active Substance: HYDROXYCHLOROQUINE SULFATE
     Indication: Product used for unknown indication
  7. COREG [Concomitant]
     Active Substance: CARVEDILOL
     Indication: Product used for unknown indication

REACTIONS (13)
  - Urine protein/creatinine ratio increased [Unknown]
  - Renal impairment [Unknown]
  - Urine albumin/creatinine ratio increased [Not Recovered/Not Resolved]
  - Klebsiella urinary tract infection [Unknown]
  - Urine abnormality [Unknown]
  - Blood creatinine increased [Unknown]
  - Back pain [Unknown]
  - Proteinuria [Not Recovered/Not Resolved]
  - Blood urea increased [Recovering/Resolving]
  - Greater trochanteric pain syndrome [Unknown]
  - Hypertension [Unknown]
  - Glomerular filtration rate decreased [Unknown]
  - Product dose omission issue [Unknown]

NARRATIVE: CASE EVENT DATE: 20230101
